FAERS Safety Report 6519012-7 (Version None)
Quarter: 2009Q4

REPORT INFORMATION
  Report Type: 
  Country: None (occurrence: None)
  Receive Date: 20091228
  Receipt Date: 20091214
  Transmission Date: 20100525
  Serious: Yes (Other)
  Sender: FDA-Public Use
  Company Number: US-PFIZER INC-2009310941

PATIENT
  Sex: Female

DRUGS (3)
  1. LYRICA [Suspect]
     Indication: FIBROMYALGIA
  2. NEURONTIN [Interacting]
     Indication: FIBROMYALGIA
  3. MILNACIPRAN HYDROCHLORIDE [Interacting]
     Indication: FIBROMYALGIA

REACTIONS (7)
  - ABNORMAL BEHAVIOUR [None]
  - DRUG INTERACTION [None]
  - EYE SWELLING [None]
  - IRRITABILITY [None]
  - LIP SWELLING [None]
  - LOCAL SWELLING [None]
  - OEDEMA PERIPHERAL [None]
